FAERS Safety Report 10203264 (Version 1)
Quarter: 2014Q2

REPORT INFORMATION
  Report Type: Spontaneous
  Country: US (occurrence: US)
  Receive Date: 20140529
  Receipt Date: 20140529
  Transmission Date: 20141212
  Serious: No
  Sender: FDA-Public Use
  Company Number: US-009507513-1405USA011139

PATIENT
  Age: 77 Year
  Sex: Male

DRUGS (1)
  1. DULERA [Suspect]
     Indication: CHRONIC OBSTRUCTIVE PULMONARY DISEASE
     Dosage: 100/5MCG, 2 PUFFS PER DAY
     Route: 055
     Dates: start: 20140514

REACTIONS (1)
  - Drug ineffective [Not Recovered/Not Resolved]
